FAERS Safety Report 12899903 (Version 1)
Quarter: 2016Q4

REPORT INFORMATION
  Report Type: Other
  Country: GB (occurrence: GB)
  Receive Date: 20161101
  Receipt Date: 20161101
  Transmission Date: 20170207
  Serious: Yes (Other)
  Sender: FDA-Public Use
  Company Number: GB-PERRIGO-16GB021328

PATIENT

DRUGS (2)
  1. PARACETAMOL [Concomitant]
     Active Substance: ACETAMINOPHEN
  2. IBUPROFEN. [Suspect]
     Active Substance: IBUPROFEN
     Indication: BONE CONTUSION
     Dosage: 400 MG, UNK
     Route: 048

REACTIONS (1)
  - Abdominal distension [Recovered/Resolved]
